FAERS Safety Report 4558366-8 (Version None)
Quarter: 2005Q1

REPORT INFORMATION
  Report Type: 
  Country: None (occurrence: None)
  Receive Date: 20050121
  Receipt Date: 20040505
  Transmission Date: 20050727
  Serious: No
  Sender: FDA-Public Use
  Company Number: US-BRISTOL-MYERS SQUIBB COMPANY-12580684

PATIENT
  Age: 52 Year
  Sex: Male

DRUGS (7)
  1. CYTOXAN [Suspect]
     Indication: ACUTE MYELOID LEUKAEMIA
     Dosage: THERAPY DATES: 04 + 05-MAY-2004
     Route: 042
     Dates: start: 20040504, end: 20040504
  2. MESNA [Suspect]
     Dosage: 24 HOUR INFUSION
     Route: 042
     Dates: start: 20040504, end: 20040504
  3. KYTRIL [Concomitant]
     Indication: PREMEDICATION
     Dates: start: 20040504, end: 20040505
  4. DECADRON [Concomitant]
     Indication: PREMEDICATION
     Dates: start: 20040504, end: 20040505
  5. IMIPENEM [Concomitant]
  6. CASPOFUNGIN ACETATE [Concomitant]
  7. VANCOMYCIN [Concomitant]

REACTIONS (1)
  - EYE IRRITATION [None]
